FAERS Safety Report 14649390 (Version 1)
Quarter: 2018Q1

REPORT INFORMATION
  Report Type: Spontaneous
  Country: FR (occurrence: FR)
  Receive Date: 20180316
  Receipt Date: 20180316
  Transmission Date: 20180509
  Serious: Yes (Hospitalization)
  Sender: FDA-Public Use
  Company Number: FR-JNJFOC-20180316091

PATIENT
  Age: 40 Year
  Sex: Female
  Weight: 57 kg

DRUGS (5)
  1. CODEINE [Concomitant]
     Active Substance: CODEINE
     Indication: PAIN
     Route: 065
  2. EFFIZINC [Concomitant]
     Active Substance: ZINC GLUCONATE
     Indication: FOLLICULITIS
     Route: 048
     Dates: start: 201709
  3. QUETIAPINE. [Concomitant]
     Active Substance: QUETIAPINE
     Indication: AFFECTIVE DISORDER
     Route: 048
     Dates: start: 2014
  4. TOLEXINE [Concomitant]
     Active Substance: DOXYCYCLINE
     Indication: FOLLICULITIS
     Route: 048
     Dates: start: 201709
  5. STELARA [Suspect]
     Active Substance: USTEKINUMAB
     Indication: ANKYLOSING SPONDYLITIS
     Route: 058
     Dates: start: 2014

REACTIONS (4)
  - Product use in unapproved indication [Unknown]
  - Haemolytic uraemic syndrome [Recovered/Resolved with Sequelae]
  - End stage renal disease [Not Recovered/Not Resolved]
  - Off label use [Unknown]

NARRATIVE: CASE EVENT DATE: 2014
